FAERS Safety Report 19686804 (Version 1)
Quarter: 2021Q3

REPORT INFORMATION
  Report Type: Spontaneous
  Country: US (occurrence: US)
  Receive Date: 20210811
  Receipt Date: 20210811
  Transmission Date: 20211014
  Serious: No
  Sender: FDA-Public Use
  Company Number: US-MEDEXUS PHARMA, INC.-2020MED00301

PATIENT
  Sex: Female

DRUGS (2)
  1. RASUVO [Suspect]
     Active Substance: METHOTREXATE SODIUM
     Dosage: 25 MG, INJECTED IN THE STOMACH
  2. RASUVO [Suspect]
     Active Substance: METHOTREXATE SODIUM
     Dosage: 25 MG, INJECTED IN THE STOMACH

REACTIONS (4)
  - Illness [Unknown]
  - Hepatic enzyme increased [Unknown]
  - Accidental exposure to product [Unknown]
  - Device malfunction [Unknown]
